FAERS Safety Report 10141757 (Version 1)
Quarter: 2014Q2

REPORT INFORMATION
  Report Type: Spontaneous
  Country: US (occurrence: US)
  Receive Date: 20140429
  Receipt Date: 20140429
  Transmission Date: 20141212
  Serious: Yes (Other)
  Sender: FDA-Public Use
  Company Number: US-PFIZER INC-2014116457

PATIENT
  Sex: Female

DRUGS (2)
  1. LEVOXYL [Suspect]
     Dosage: UNK
     Dates: end: 2013
  2. LEVOXYL [Suspect]
     Dosage: UNK
     Dates: start: 2014

REACTIONS (3)
  - Hypertension [Unknown]
  - Agitation [Unknown]
  - Impatience [Unknown]
